FAERS Safety Report 9676694 (Version 1)
Quarter: 2013Q4

REPORT INFORMATION
  Report Type: Spontaneous
  Country: US (occurrence: US)
  Receive Date: 20131107
  Receipt Date: 20131107
  Transmission Date: 20140711
  Serious: No
  Sender: FDA-Public Use
  Company Number: US-009507513-1310USA011619

PATIENT
  Age: 61 Year
  Sex: Female

DRUGS (1)
  1. VICTRELIS [Suspect]
     Indication: HEPATITIS C
     Dosage: 600 MG, Q8H
     Route: 048
     Dates: start: 20131004, end: 201310

REACTIONS (3)
  - Abdominal discomfort [Unknown]
  - Gastric disorder [Unknown]
  - Underdose [Unknown]
